FAERS Safety Report 4316303-5 (Version None)
Quarter: 2004Q1

REPORT INFORMATION
  Report Type: 
  Country: None (occurrence: None)
  Receive Date: 20040311
  Receipt Date: 20040227
  Transmission Date: 20041129
  Serious: Yes (Other)
  Sender: FDA-Public Use
  Company Number: DE-JNJFOC-20040300229

PATIENT
  Age: 72 Year
  Sex: Male

DRUGS (7)
  1. GALANTAMINE (GALANTAMINE) [Suspect]
     Indication: COGNITIVE DISORDER
     Dosage: 8 MG,
     Dates: start: 20040108, end: 20040224
  2. MEMANTINE HCL [Suspect]
     Dosage: 5 MG,
     Dates: start: 20040108, end: 20040225
  3. SPASMOLYT (TROSPIUM CHLORIDE) [Concomitant]
  4. POLYVIDON (POLYVIDONE) [Concomitant]
  5. LISINOPRIL [Concomitant]
  6. TICLOPIDIN (TICLOPIDINE) [Concomitant]
  7. SIMVASTATIN [Concomitant]

REACTIONS (2)
  - CEREBROVASCULAR ACCIDENT [None]
  - DRUG INTERACTION [None]
